FAERS Safety Report 4578555-6 (Version None)
Quarter: 2005Q1

REPORT INFORMATION
  Report Type: 
  Country: None (occurrence: None)
  Receive Date: 20050211
  Receipt Date: 20050201
  Transmission Date: 20050727
  Serious: Yes (Other)
  Sender: FDA-Public Use
  Company Number: PHNR2005AU00515

PATIENT
  Age: 40 Year
  Sex: Female

DRUGS (4)
  1. TEGRETOL [Suspect]
  2. PROGESTERONE [Suspect]
     Dosage: UNK, UNK
  3. EPILIM [Concomitant]
  4. KEPPRA [Concomitant]

REACTIONS (2)
  - CONVULSION [None]
  - DRUG INTERACTION [None]
